FAERS Safety Report 23751626 (Version 1)
Quarter: 2024Q2

REPORT INFORMATION
  Report Type: Spontaneous
  Country: US (occurrence: None)
  Receive Date: 20240416
  Receipt Date: 20240416
  Transmission Date: 20240716
  Serious: No
  Sender: FDA-Public Use
  Company Number: None

PATIENT
  Sex: Female

DRUGS (1)
  1. ORENCIA [Suspect]
     Active Substance: ABATACEPT
     Route: 058
     Dates: start: 20231222

REACTIONS (6)
  - Pain [None]
  - Loss of personal independence in daily activities [None]
  - Surgery [None]
  - Therapy interrupted [None]
  - Fatigue [None]
  - Arthralgia [None]
